FAERS Safety Report 7499176-1 (Version None)
Quarter: 2011Q2

REPORT INFORMATION
  Report Type: 
  Country: None (occurrence: None)
  Receive Date: 20110524
  Receipt Date: 20110511
  Transmission Date: 20111010
  Serious: Yes (Other)
  Sender: FDA-Public Use
  Company Number: US-ELI_LILLY_AND_COMPANY-US201104002149

PATIENT
  Sex: Female
  Weight: 58.503 kg

DRUGS (2)
  1. FORTEO [Suspect]
     Indication: OSTEOPOROSIS
     Dosage: 20 UG, QD
     Route: 058
     Dates: start: 20100525
  2. SYNTHROID [Concomitant]

REACTIONS (1)
  - NON-HODGKIN'S LYMPHOMA RECURRENT [None]
